FAERS Safety Report 6441270-8 (Version None)
Quarter: 2009Q4

REPORT INFORMATION
  Report Type: 
  Country: None (occurrence: None)
  Receive Date: 20091113
  Receipt Date: 20091105
  Transmission Date: 20100525
  Serious: No
  Sender: FDA-Public Use
  Company Number: DL2009653

PATIENT
  Sex: Female

DRUGS (2)
  1. MIFEPRISTONE TABLETS, 200 MG (DANCO LABS) [Suspect]
     Indication: ABORTION INDUCED
     Dosage: 200 MG, ORAL
     Route: 048
     Dates: start: 20091009
  2. MISOPROSTOL [Suspect]
     Dosage: 800 MCG, BUCCAL
     Route: 002
     Dates: start: 20091011

REACTIONS (6)
  - ANAEMIA [None]
  - ASTHENIA [None]
  - DIZZINESS [None]
  - HAEMORRHAGE [None]
  - HEADACHE [None]
  - HYPOAESTHESIA [None]
